FAERS Safety Report 8100643-8 (Version None)
Quarter: 2012Q1

REPORT INFORMATION
  Report Type: 
  Country: None (occurrence: None)
  Receive Date: 20120131
  Receipt Date: 20120125
  Transmission Date: 20120608
  Serious: Yes (Other)
  Sender: FDA-Public Use
  Company Number: NL-PFIZER INC-2011275055

PATIENT
  Sex: Female

DRUGS (3)
  1. EZETIMIBE [Suspect]
     Dosage: UNK
     Route: 048
  2. ATORVASTATIN CALCIUM [Suspect]
     Dosage: UNK
     Route: 048
  3. COLESEVELAM HYDROCHLORIDE [Suspect]
     Dosage: 5 TABLETS DAILY
     Route: 048

REACTIONS (1)
  - ABORTION SPONTANEOUS [None]
